FAERS Safety Report 13485502 (Version 1)
Quarter: 2017Q2

REPORT INFORMATION
  Report Type: Spontaneous
  Country: ES (occurrence: ES)
  Receive Date: 20170426
  Receipt Date: 20170426
  Transmission Date: 20170830
  Serious: Yes (Other)
  Sender: FDA-Public Use
  Company Number: ES-AMGEN-ESPSP2017061435

PATIENT
  Age: 76 Year
  Sex: Female
  Weight: 49 kg

DRUGS (13)
  1. PROLIA [Suspect]
     Active Substance: DENOSUMAB
     Indication: OSTEOPOROTIC FRACTURE
     Dosage: 60 MG
     Route: 058
     Dates: start: 201304, end: 2015
  2. MASTICAL [Concomitant]
     Dosage: 1 DF, UNK
  3. NOLOTIL [Concomitant]
     Active Substance: METAMIZOLE
     Indication: PAIN
     Dosage: 1 DF, UNK
  4. EZETROL [Concomitant]
     Active Substance: EZETIMIBE
     Dosage: 10 MG, QD
  5. TRAMADOL. [Concomitant]
     Active Substance: TRAMADOL
     Dosage: 50 MG, UNK
  6. PAZITAL [Concomitant]
     Active Substance: ACETAMINOPHEN\TRAMADOL HYDROCHLORIDE
     Dosage: 1 DF, UNK
  7. PROLIA [Suspect]
     Active Substance: DENOSUMAB
     Dosage: 60 UNK, UNK
     Route: 058
     Dates: start: 20170131, end: 20170131
  8. ADIRO [Concomitant]
     Active Substance: ASPIRIN
     Dosage: 100 MG, QD
  9. ENALAPRIL [Concomitant]
     Active Substance: ENALAPRIL
     Dosage: 5 MG, UNK
  10. SIMVASTATINA [Concomitant]
     Active Substance: SIMVASTATIN
     Dosage: 20 MG, QD
  11. IMUREL [Concomitant]
     Active Substance: AZATHIOPRINE SODIUM
     Dosage: 50 MG, UNK
  12. OMEPRAZOL [Concomitant]
     Active Substance: OMEPRAZOLE
     Dosage: 20 MG, UNK
  13. FOLIDOCE [Concomitant]
     Active Substance: CYANOCOBALAMIN\FOLIC ACID
     Dosage: 1 DF, UNK

REACTIONS (1)
  - Hyperparathyroidism secondary [Unknown]

NARRATIVE: CASE EVENT DATE: 20170228
